FAERS Safety Report 5871607-X (Version None)
Quarter: 2008Q3

REPORT INFORMATION
  Report Type: 
  Country: None (occurrence: None)
  Receive Date: 20080905
  Receipt Date: 20080701
  Transmission Date: 20090109
  Serious: No
  Sender: FDA-Public Use
  Company Number: A0735576A

PATIENT
  Sex: Male

DRUGS (8)
  1. REQUIP [Suspect]
     Indication: RESTLESS LEGS SYNDROME
     Route: 048
  2. SINEMET [Concomitant]
  3. ASPIRIN [Concomitant]
  4. CADUET [Concomitant]
  5. LOTENSIN [Concomitant]
  6. CLARITIN [Concomitant]
  7. PLAVIX [Concomitant]
  8. FLUTICASONE PROPIONATE [Concomitant]

REACTIONS (3)
  - CONSTIPATION [None]
  - RASH PRURITIC [None]
  - STOMACH DISCOMFORT [None]
